FAERS Safety Report 6985816-X (Version None)
Quarter: 2010Q3

REPORT INFORMATION
  Report Type: 
  Country: None (occurrence: None)
  Receive Date: 20100915
  Receipt Date: 20100902
  Transmission Date: 20110219
  Serious: Yes (Hospitalization, Other)
  Sender: FDA-Public Use
  Company Number: PHHY2010US58519

PATIENT

DRUGS (1)
  1. RECLAST [Suspect]

REACTIONS (1)
  - CEREBRAL HAEMORRHAGE [None]
